FAERS Safety Report 22390140 (Version 2)
Quarter: 2023Q2

REPORT INFORMATION
  Report Type: Report from Study
  Country: US (occurrence: US)
  Receive Date: 20230531
  Receipt Date: 20230606
  Transmission Date: 20230721
  Serious: No
  Sender: FDA-Public Use
  Company Number: US-002147023-NVSC2023US122107

PATIENT
  Sex: Female

DRUGS (2)
  1. MOMETASONE [Suspect]
     Active Substance: MOMETASONE
     Indication: Psoriasis
     Dosage: UNK
     Route: 061
     Dates: start: 20220315
  2. MOMETASONE [Suspect]
     Active Substance: MOMETASONE
     Indication: Psoriasis

REACTIONS (3)
  - Arthralgia [Unknown]
  - Treatment failure [Unknown]
  - Medication error [Unknown]
